FAERS Safety Report 14021711 (Version 1)
Quarter: 2017Q3

REPORT INFORMATION
  Report Type: Spontaneous
  Country: US (occurrence: US)
  Receive Date: 20170928
  Receipt Date: 20170928
  Transmission Date: 20171128
  Serious: No
  Sender: FDA-Public Use
  Company Number: US-CLOVIS ONCOLOGY-CLO-2017-000999

PATIENT
  Sex: Female

DRUGS (3)
  1. RUBRACA [Suspect]
     Active Substance: RUCAPARIB CAMSYLATE
     Dosage: 550 MG, BID
  2. RUBRACA [Suspect]
     Active Substance: RUCAPARIB CAMSYLATE
     Indication: PRODUCT USED FOR UNKNOWN INDICATION
     Dosage: 600 MG, BID
  3. RUBRACA [Suspect]
     Active Substance: RUCAPARIB CAMSYLATE
     Dosage: 500 MG, BID

REACTIONS (9)
  - Hypoaesthesia [Unknown]
  - Dysgeusia [Unknown]
  - Fatigue [Unknown]
  - Accidental underdose [Unknown]
  - Memory impairment [Unknown]
  - Poor quality sleep [Unknown]
  - Pain [Unknown]
  - Sensory disturbance [Unknown]
  - Gait disturbance [Unknown]
